FAERS Safety Report 6148303-7 (Version None)
Quarter: 2009Q2

REPORT INFORMATION
  Report Type: 
  Country: None (occurrence: None)
  Receive Date: 20090408
  Receipt Date: 20090403
  Transmission Date: 20091009
  Serious: Yes (Death, Other)
  Sender: FDA-Public Use
  Company Number: US-KINGPHARMUSA00001-K200801456

PATIENT
  Age: 76 Year
  Sex: Female

DRUGS (7)
  1. ALTACE [Suspect]
     Indication: CARDIAC FAILURE CONGESTIVE
     Dosage: 2.5 MG, QD
     Route: 048
     Dates: start: 20061201, end: 20070222
  2. ASPIRIN [Concomitant]
  3. LANOXIN [Concomitant]
     Dosage: 62.5 MCG, UNK
  4. PLAVIX [Concomitant]
  5. FRUSEMIDE                          /00032601/ [Suspect]
     Indication: CARDIAC FAILURE CONGESTIVE
     Dosage: 40 MG, QD
     Route: 048
     Dates: start: 20060101
  6. MESULID [Suspect]
     Indication: RHEUMATOID ARTHRITIS
     Dosage: 100 MG, QD
     Route: 048
     Dates: start: 20060630, end: 20061201
  7. MESULID [Suspect]
     Dosage: 200 MG, QD
     Dates: start: 20061201, end: 20070207

REACTIONS (3)
  - CARDIO-RESPIRATORY ARREST [None]
  - DYSPNOEA [None]
  - RENAL FAILURE CHRONIC [None]
